FAERS Safety Report 10080120 (Version 2)
Quarter: 2014Q2

REPORT INFORMATION
  Report Type: Spontaneous
  Country: DK (occurrence: DE)
  Receive Date: 20140415
  Receipt Date: 20140528
  Transmission Date: 20141212
  Serious: Yes (Life-Threatening, Hospitalization, Congenital Anomaly)
  Sender: FDA-Public Use
  Company Number: DE-FRI-1000066530

PATIENT
  Age: 0 Day
  Sex: Male
  Weight: 3.1 kg

DRUGS (3)
  1. CITALOPRAM [Suspect]
     Dosage: 40 MG
     Route: 064
  2. KEPPRA [Suspect]
     Dosage: 1000 MG
     Route: 064
  3. L-THYROXIN [Concomitant]
     Dosage: 87.5 MCG
     Route: 064

REACTIONS (13)
  - Persistent foetal circulation [Recovered/Resolved]
  - Respiratory disorder neonatal [Recovered/Resolved]
  - Pulmonary valve stenosis [Not Recovered/Not Resolved]
  - Mitral valve incompetence [Not Recovered/Not Resolved]
  - Metabolic acidosis [Recovered/Resolved]
  - Respiratory acidosis [Recovered/Resolved]
  - Hypocalcaemia [Recovered/Resolved]
  - Hypokalaemia [Recovered/Resolved]
  - Atrial septal defect [Not Recovered/Not Resolved]
  - Patent ductus arteriosus [Recovered/Resolved]
  - Poor sucking reflex [Recovered/Resolved]
  - Hydrocele [Unknown]
  - Foetal exposure during pregnancy [Not Recovered/Not Resolved]
